FAERS Safety Report 7447429-5 (Version None)
Quarter: 2011Q2

REPORT INFORMATION
  Report Type: 
  Country: None (occurrence: None)
  Receive Date: 20110429
  Receipt Date: 20110222
  Transmission Date: 20111010
  Serious: No
  Sender: FDA-Public Use
  Company Number: US-ASTRAZENECA-2011SE10211

PATIENT
  Age: 41 Year
  Sex: Male

DRUGS (2)
  1. TUMS [Concomitant]
  2. NEXIUM [Suspect]
     Route: 048

REACTIONS (7)
  - MALAISE [None]
  - DRUG DOSE OMISSION [None]
  - DYSPNOEA [None]
  - DYSPEPSIA [None]
  - SLEEP DISORDER DUE TO GENERAL MEDICAL CONDITION, INSOMNIA TYPE [None]
  - APHAGIA [None]
  - INSOMNIA [None]
